FAERS Safety Report 8085565-3 (Version None)
Quarter: 2012Q1

REPORT INFORMATION
  Report Type: 
  Country: None (occurrence: None)
  Receive Date: 20120128
  Receipt Date: 20110407
  Transmission Date: 20120608
  Serious: No
  Sender: FDA-Public Use
  Company Number: US-ABBOTT-11P-163-0714598-00

PATIENT
  Age: 53 Year
  Sex: Female

DRUGS (9)
  1. PRILOSEC [Concomitant]
     Indication: DYSPEPSIA
     Route: 048
  2. HUMIRA [Suspect]
     Indication: CROHN'S DISEASE
     Dates: start: 20110103
  3. BENTYL [Concomitant]
     Indication: ABDOMINAL PAIN UPPER
  4. SOMA [Concomitant]
     Indication: FIBROMYALGIA
  5. CLONAZEPAM [Concomitant]
     Indication: INSOMNIA
     Dosage: AT BEDTIME
  6. GABAPENTIN [Concomitant]
     Indication: PRODUCT USED FOR UNKNOWN INDICATION
  7. PERCOCET [Concomitant]
     Dosage: 7.5/500 MG
  8. PERCOCET [Concomitant]
     Indication: PAIN
     Dosage: 7.5/500MG PRN
  9. BUTABITAL COMPOUND [Concomitant]
     Indication: MIGRAINE

REACTIONS (8)
  - NERVOUSNESS [None]
  - PARAESTHESIA [None]
  - NAUSEA [None]
  - FIBROMYALGIA [None]
  - CHEST DISCOMFORT [None]
  - EYE DISORDER [None]
  - CHILLS [None]
  - HYPERHIDROSIS [None]
